FAERS Safety Report 11358529 (Version 1)
Quarter: 2015Q3

REPORT INFORMATION
  Report Type: Spontaneous
  Country: US (occurrence: US)
  Receive Date: 20150803
  Receipt Date: 20150803
  Transmission Date: 20151125
  Serious: No
  Sender: FDA-Public Use
  Company Number: US-ELI_LILLY_AND_COMPANY-US201008001850

PATIENT
  Age: 90 Year
  Sex: Female

DRUGS (5)
  1. PLAVIX [Concomitant]
     Active Substance: CLOPIDOGREL BISULFATE
  2. ZYPREXA [Suspect]
     Active Substance: OLANZAPINE
     Indication: ANXIETY
     Dosage: 2.5 MG, 3/D
  3. CITALOPRAM [Concomitant]
     Active Substance: CITALOPRAM HYDROBROMIDE
  4. TRAZODONE [Concomitant]
     Active Substance: TRAZODONE HYDROCHLORIDE
  5. DIOVAN [Concomitant]
     Active Substance: VALSARTAN

REACTIONS (3)
  - Somnolence [Unknown]
  - Fatigue [Unknown]
  - Off label use [Unknown]
